FAERS Safety Report 20883546 (Version 1)
Quarter: 2022Q2

REPORT INFORMATION
  Report Type: Spontaneous
  Country: US (occurrence: None)
  Receive Date: 20220526
  Receipt Date: 20220526
  Transmission Date: 20220721
  Serious: Yes (Disabling, Other)
  Sender: FDA-Public Use
  Company Number: None

PATIENT
  Age: 31 Year
  Sex: Male
  Weight: 96.3 kg

DRUGS (6)
  1. .DELTA.8-TETRAHYDROCANNABINOL\HERBALS [Suspect]
     Active Substance: .DELTA.8-TETRAHYDROCANNABINOL\HERBALS
     Indication: Substance use
     Dosage: OTHER QUANTITY : 4 GUMMIES;?OTHER FREQUENCY : ONE TIME USE.;?
     Route: 048
     Dates: start: 20220517, end: 20220517
  2. .DELTA.8-TETRAHYDROCANNABINOL\HERBALS [Suspect]
     Active Substance: .DELTA.8-TETRAHYDROCANNABINOL\HERBALS
     Indication: Substance use
     Dosage: OTHER QUANTITY : 1 JOINT;?FREQUENCY : AT BEDTIME;?
     Route: 055
     Dates: start: 20220525, end: 20220525
  3. .DELTA.9-TETRAHYDROCANNABINOL ACETATE\HERBALS [Suspect]
     Active Substance: .DELTA.9-TETRAHYDROCANNABINOL ACETATE\HERBALS
     Indication: Substance use
     Dosage: OTHER QUANTITY : 4 GUMMIES;?OTHER FREQUENCY : ONE TIME USE.;
     Route: 048
     Dates: start: 20220517, end: 20220517
  4. HERBALS\HEXAHYDROCANNABINOL [Suspect]
     Active Substance: HERBALS\HEXAHYDROCANNABINOL
     Indication: Substance use
     Dosage: OTHER QUANTITY : 4 GUMMIES;?OTHER FREQUENCY : ONE TIME USE.;
     Route: 048
     Dates: start: 20220517, end: 20220517
  5. CANNABIDIOL\HERBALS\TETRAHYDROCANNABINOL MIXED [Suspect]
     Active Substance: CANNABIDIOL\HERBALS\TETRAHYDROCANNABINOL MIXED
     Indication: Substance use
     Dosage: OTHER QUANTITY : 1 JOINT;?FREQUENCY : AT BEDTIME;
     Route: 055
     Dates: start: 20220525, end: 20220525
  6. Daily mens vitamin generic [Concomitant]

REACTIONS (11)
  - Chest pain [None]
  - Anxiety [None]
  - Fear [None]
  - Adverse reaction [None]
  - Product formulation issue [None]
  - Product complaint [None]
  - Respiration abnormal [None]
  - Heart rate increased [None]
  - Blood pressure increased [None]
  - Dizziness [None]
  - Product use complaint [None]

NARRATIVE: CASE EVENT DATE: 20220525
